FAERS Safety Report 6773067-3 (Version None)
Quarter: 2010Q2

REPORT INFORMATION
  Report Type: 
  Country: None (occurrence: None)
  Receive Date: 20100616
  Receipt Date: 20100604
  Transmission Date: 20101027
  Serious: Yes (Other)
  Sender: FDA-Public Use
  Company Number: BR-PFIZER INC-2010036192

PATIENT
  Age: 47 Year
  Sex: Male
  Weight: 80 kg

DRUGS (10)
  1. CHAMPIX [Suspect]
     Indication: TOBACCO USER
     Dosage: 1 MG, 2X/DAY, EVERY 12 HOURS
     Route: 048
     Dates: start: 20100306
  2. SELOZOK [Concomitant]
     Indication: HYPERTENSION
     Dosage: UNK
     Dates: start: 20100101
  3. MICARDIS [Concomitant]
     Indication: ANGINA PECTORIS
     Dosage: 80 MG, UNK
     Dates: start: 20100101
  4. MOTILIUM [Concomitant]
     Indication: GASTROOESOPHAGEAL REFLUX DISEASE
     Dosage: UNK
     Dates: start: 20100101
  5. SOMALGIN [Concomitant]
     Indication: ANTICOAGULANT THERAPY
     Dosage: 100 MG, UNK
     Dates: start: 20100101
  6. LIPITOR [Concomitant]
     Indication: BLOOD CHOLESTEROL INCREASED
     Dosage: 80 MG, UNK
     Dates: start: 20100101
  7. METFORMIN HYDROCHLORIDE [Concomitant]
     Indication: DIABETES MELLITUS
     Dosage: UNK
     Dates: start: 20070101
  8. PLAVIX [Concomitant]
     Indication: ANTICOAGULANT THERAPY
     Dosage: UNK
  9. LUFTAL [Concomitant]
     Indication: FLATULENCE
     Dosage: UNK
  10. OLICARD [Concomitant]
     Dosage: 80 MG, UNK

REACTIONS (2)
  - NERVOUSNESS [None]
  - SUICIDAL IDEATION [None]
